FAERS Safety Report 5728873-0 (Version None)
Quarter: 2008Q2

REPORT INFORMATION
  Report Type: 
  Country: None (occurrence: None)
  Receive Date: 20080506
  Receipt Date: 20080429
  Transmission Date: 20081010
  Serious: Yes (Other)
  Sender: FDA-Public Use
  Company Number: US-ASTRAZENECA-2008UW08701

PATIENT
  Age: 48 Year
  Sex: Female
  Weight: 72.1 kg

DRUGS (1)
  1. CRESTOR [Suspect]
     Indication: BLOOD CHOLESTEROL INCREASED
     Route: 048

REACTIONS (7)
  - ASTHENIA [None]
  - CEREBROVASCULAR ACCIDENT [None]
  - DIZZINESS [None]
  - GAIT DISTURBANCE [None]
  - HYPERTENSION [None]
  - MYALGIA [None]
  - NEUROMYOPATHY [None]
